FAERS Safety Report 20382875 (Version 1)
Quarter: 2022Q1

REPORT INFORMATION
  Report Type: Spontaneous
  Country: US (occurrence: None)
  Receive Date: 20220127
  Receipt Date: 20220127
  Transmission Date: 20220423
  Serious: No
  Sender: FDA-Public Use
  Company Number: None

PATIENT
  Age: 9 Year
  Sex: Male

DRUGS (1)
  1. TUBERCULIN NOS [Suspect]
     Active Substance: TUBERCULIN PURIFIED PROTEIN DERIVATIVE
     Dosage: OTHER FREQUENCY : LEFT ARM;?
     Route: 030

REACTIONS (2)
  - Incorrect route of product administration [None]
  - Product administered at inappropriate site [None]

NARRATIVE: CASE EVENT DATE: 20220118
